FAERS Safety Report 8511758-4 (Version None)
Quarter: 2012Q3

REPORT INFORMATION
  Report Type: 
  Country: None (occurrence: None)
  Receive Date: 20120716
  Receipt Date: 20120710
  Transmission Date: 20120928
  Serious: Yes (Other)
  Sender: FDA-Public Use
  Company Number: US-BAYER-2012-069922

PATIENT
  Age: 73 Year
  Sex: Female
  Weight: 63 kg

DRUGS (2)
  1. ALEVE (CAPLET) [Suspect]
     Dosage: 1 DF, PRN
     Route: 048
  2. ASPIRIN [Suspect]
     Indication: SLEEP DISORDER THERAPY
     Dosage: UNK, PRN
     Route: 048

REACTIONS (6)
  - SOMNOLENCE [None]
  - SLEEP DISORDER [None]
  - HYPOTONIA [None]
  - FEELING OF RELAXATION [None]
  - FATIGUE [None]
  - SYNCOPE [None]
